FAERS Safety Report 11428285 (Version 2)
Quarter: 2015Q3

REPORT INFORMATION
  Report Type: Spontaneous
  Country: FI (occurrence: FI)
  Receive Date: 20150828
  Receipt Date: 20150828
  Transmission Date: 20151125
  Serious: Yes (Death, Hospitalization)
  Sender: FDA-Public Use
  Company Number: FI-009507513-1508FIN008751

PATIENT
  Age: 62 Year
  Sex: Male

DRUGS (12)
  1. INTRON A [Suspect]
     Active Substance: INTERFERON ALFA-2B
     Indication: MALIGNANT MELANOMA
     Dosage: 10 MILLION IU, 5 TIMES A WEEK
     Route: 058
     Dates: start: 20150421, end: 20150530
  2. SIMVASTATIN. [Concomitant]
     Active Substance: SIMVASTATIN
     Indication: HYPERCHOLESTEROLAEMIA
     Dosage: TOTAL DAILY DOSE 60 MG
     Route: 048
     Dates: end: 20150709
  3. DINIT [Concomitant]
     Active Substance: ISOSORBIDE DINITRATE
  4. BURANA [Concomitant]
     Active Substance: IBUPROFEN
     Route: 048
  5. INTRON A [Suspect]
     Active Substance: INTERFERON ALFA-2B
     Dosage: 3 MILLION IU, 3 TIMES A WEEK
     Route: 058
     Dates: start: 20150602, end: 20150709
  6. AMLODIPINE [Concomitant]
     Active Substance: AMLODIPINE BESYLATE
     Indication: HYPERTENSION
     Dosage: TOTAL DAILY DOSE 5 MG
     Route: 048
     Dates: end: 20150714
  7. BISOPROLOL [Concomitant]
     Active Substance: BISOPROLOL
     Indication: HYPERTENSION
     Dosage: TOTAL DAILY DOSE 5 MG
     Route: 048
     Dates: end: 20150714
  8. PANACOD [Concomitant]
     Active Substance: ACETAMINOPHEN\CODEINE PHOSPHATE
     Indication: PAIN
     Dosage: 4-8 TABLETS A DAY
     Route: 048
     Dates: end: 20150709
  9. PRIMPERAN [Concomitant]
     Active Substance: METOCLOPRAMIDE HYDROCHLORIDE
     Indication: NAUSEA
     Dosage: 1-3 TABLETS A DAY
     Route: 048
  10. ENALAPRIL MALEATE. [Concomitant]
     Active Substance: ENALAPRIL MALEATE
     Indication: HYPERTENSION
     Dosage: TOTAL DAILY DOSE 20 MG
     Route: 048
     Dates: end: 20150714
  11. PRIMASPAN [Concomitant]
     Indication: CARDIOVASCULAR DISORDER
     Dosage: TOTAL DAILY DOSE 100 MG
     Route: 048
     Dates: end: 20150714
  12. PANADOL [Concomitant]
     Active Substance: ACETAMINOPHEN
     Indication: MUSCULOSKELETAL PAIN
     Dosage: TOTAL DAILY DOSE 1-4 G
     Route: 048
     Dates: end: 20150709

REACTIONS (9)
  - Quality of life decreased [Unknown]
  - Chromaturia [Unknown]
  - Death [Fatal]
  - Weight decreased [Unknown]
  - Localised intraabdominal fluid collection [Unknown]
  - Fatigue [Unknown]
  - Faeces pale [Unknown]
  - Ocular icterus [Unknown]
  - Yellow skin [Unknown]

NARRATIVE: CASE EVENT DATE: 2015
